FAERS Safety Report 7905724-7 (Version None)
Quarter: 2011Q4

REPORT INFORMATION
  Report Type: 
  Country: None (occurrence: None)
  Receive Date: 20111108
  Receipt Date: 20111025
  Transmission Date: 20120403
  Serious: Yes (Other)
  Sender: FDA-Public Use
  Company Number: 2011MA014130

PATIENT
  Age: 21 Year
  Sex: Female

DRUGS (2)
  1. LAMICTAL [Concomitant]
  2. CETIRIZINE HCL [Suspect]
     Indication: OEDEMA PERIPHERAL
     Dosage: ;QD;PO
     Route: 048
     Dates: start: 20061116, end: 20110501

REACTIONS (4)
  - OFF LABEL USE [None]
  - EPILEPSY [None]
  - OEDEMA PERIPHERAL [None]
  - SWELLING FACE [None]
